FAERS Safety Report 24832381 (Version 1)
Quarter: 2025Q1

REPORT INFORMATION
  Report Type: Spontaneous
  Country: AU (occurrence: AU)
  Receive Date: 20250110
  Receipt Date: 20250110
  Transmission Date: 20250409
  Serious: Yes (Life-Threatening, Other)
  Sender: PFIZER
  Company Number: AU-PFIZER INC-PV202500002641

PATIENT
  Age: 3 Week
  Sex: Female
  Weight: 4 kg

DRUGS (12)
  1. LEUCOVORIN CALCIUM [Suspect]
     Active Substance: LEUCOVORIN CALCIUM
     Indication: Seizure
  2. PHENYTOIN [Suspect]
     Active Substance: PHENYTOIN
     Indication: Seizure
  3. PHENOBARBITAL [Suspect]
     Active Substance: PHENOBARBITAL
     Indication: Seizure
  4. CLONAZEPAM [Suspect]
     Active Substance: CLONAZEPAM
     Indication: Seizure
  5. CARBAMAZEPINE [Suspect]
     Active Substance: CARBAMAZEPINE
     Indication: Seizure
  6. NITRAZEPAM [Suspect]
     Active Substance: NITRAZEPAM
     Indication: Seizure
  7. VIGABATRIN [Suspect]
     Active Substance: VIGABATRIN
     Indication: Seizure
  8. LAMOTRIGINE [Suspect]
     Active Substance: LAMOTRIGINE
     Indication: Seizure
  9. PREDNISOLONE [Suspect]
     Active Substance: PREDNISOLONE
     Indication: Seizure
     Route: 048
  10. COSYNTROPIN HEXAACETATE [Suspect]
     Active Substance: COSYNTROPIN HEXAACETATE
     Indication: Seizure
     Route: 030
  11. PYRIDOXINE [Suspect]
     Active Substance: PYRIDOXINE
     Indication: Seizure
  12. BIOTIN [Suspect]
     Active Substance: BIOTIN
     Indication: Seizure

REACTIONS (1)
  - Drug ineffective [Unknown]
